FAERS Safety Report 10311789 (Version 4)
Quarter: 2014Q4

REPORT INFORMATION
  Report Type: Spontaneous
  Country: JP (occurrence: JP)
  Receive Date: 20140717
  Receipt Date: 20141022
  Transmission Date: 20150528
  Serious: Yes (Hospitalization)
  Sender: FDA-Public Use
  Company Number: JP-BAYER-2014-103892

PATIENT
  Age: 78 Year
  Sex: Male
  Weight: 87 kg

DRUGS (9)
  1. BAYASPIRIN [Suspect]
     Active Substance: ASPIRIN
     Indication: ANGINA PECTORIS
     Dosage: 100 MG, QD
     Route: 048
     Dates: start: 200602, end: 201306
  2. CO-DIOVAN [Suspect]
     Active Substance: HYDROCHLOROTHIAZIDE\VALSARTAN
     Indication: HYPERTENSION
     Dosage: 1 DF, QD
     Route: 048
     Dates: start: 201004, end: 201306
  3. MARZULENE S [Suspect]
     Active Substance: GLUTAMINE\SODIUM GUALENATE
     Indication: GASTRITIS
     Dosage: 1.340 G, QD
     Route: 048
     Dates: start: 201306
  4. AZULFIDINE EN-TABS [Concomitant]
     Active Substance: SULFASALAZINE
     Indication: RHEUMATOID ARTHRITIS
     Dosage: 500 MG, QD
     Route: 048
  5. JANUVIA [Concomitant]
     Active Substance: SITAGLIPTIN PHOSPHATE
     Indication: DIABETES MELLITUS
     Dosage: 50 MG, QD
     Route: 048
     Dates: start: 201301
  6. RASILEZ [Concomitant]
     Active Substance: ALISKIREN
     Indication: HYPERTENSION
     Dosage: 150 MG, QD
     Route: 048
     Dates: start: 201302
  7. ADALAT CC [Suspect]
     Active Substance: NIFEDIPINE
     Indication: HYPERTENSION
     Dosage: 80 MG, QD
     Route: 048
     Dates: start: 201306
  8. DIOVAN [Suspect]
     Active Substance: VALSARTAN
     Indication: HYPERTENSION
     Dosage: 80 MG, QD
     Route: 048
  9. LIPITOR [Concomitant]
     Active Substance: ATORVASTATIN CALCIUM
     Indication: DYSLIPIDAEMIA
     Dosage: 5 MG, QD
     Route: 048

REACTIONS (2)
  - Pleural effusion [Recovered/Resolved]
  - Dyspnoea exertional [Recovered/Resolved]

NARRATIVE: CASE EVENT DATE: 20130304
